FAERS Safety Report 12187455 (Version 1)
Quarter: 2016Q1

REPORT INFORMATION
  Report Type: Report from Study
  Country: JP (occurrence: JP)
  Receive Date: 20160317
  Receipt Date: 20160317
  Transmission Date: 20160526
  Serious: Yes (Hospitalization)
  Sender: FDA-Public Use
  Company Number: JP-SA-2016SA050054

PATIENT
  Age: 43 Year
  Sex: Male

DRUGS (2)
  1. PHOSBLOCK [Suspect]
     Active Substance: FERRIC HYDROXIDE
     Route: 048
     Dates: start: 20140715, end: 20151117
  2. ROCALTROL [Suspect]
     Active Substance: CALCITRIOL
     Route: 065
     Dates: start: 20150813, end: 20151209

REACTIONS (1)
  - Hospitalisation [Unknown]

NARRATIVE: CASE EVENT DATE: 20160208
